FAERS Safety Report 8553676-1 (Version None)
Quarter: 2012Q3

REPORT INFORMATION
  Report Type: 
  Country: None (occurrence: None)
  Receive Date: 20120731
  Receipt Date: 20120718
  Transmission Date: 20120928
  Serious: Yes (Hospitalization, Other)
  Sender: FDA-Public Use
  Company Number: US-009507513-1108USA03575

PATIENT

DRUGS (2)
  1. FOSAMAX [Suspect]
     Indication: OSTEOPOROSIS
     Dosage: 70 MG, QW
     Route: 048
     Dates: start: 20030121, end: 20100101
  2. FOSAMAX [Suspect]
     Dosage: 10 MG, QD
     Route: 048
     Dates: start: 20080828

REACTIONS (57)
  - FEMUR FRACTURE [None]
  - COLON ADENOMA [None]
  - CONSTIPATION [None]
  - NASAL POLYPS [None]
  - HEAD INJURY [None]
  - INTERVERTEBRAL DISC DISORDER [None]
  - ADVERSE EVENT [None]
  - VARICOSE VEIN [None]
  - SPONDYLITIS [None]
  - RADICULOPATHY [None]
  - WOUND DEHISCENCE [None]
  - ABDOMINAL DISCOMFORT [None]
  - DEHYDRATION [None]
  - SPONDYLOLISTHESIS [None]
  - JOINT DISLOCATION [None]
  - TOOTH DISORDER [None]
  - LARYNGITIS [None]
  - NEUROPATHY PERIPHERAL [None]
  - HYPERTONIC BLADDER [None]
  - EXOSTOSIS [None]
  - MENINGITIS [None]
  - INTERVERTEBRAL DISC SPACE NARROWING [None]
  - BACK DISORDER [None]
  - HEAT STROKE [None]
  - CHRONIC OBSTRUCTIVE PULMONARY DISEASE [None]
  - URINARY TRACT INFECTION [None]
  - FACET JOINT SYNDROME [None]
  - HAEMORRHOIDS [None]
  - DIVERTICULUM [None]
  - CELLULITIS [None]
  - ARTHROPOD BITE [None]
  - FALL [None]
  - RESTLESS LEGS SYNDROME [None]
  - TENDONITIS [None]
  - MUSCLE SPASMS [None]
  - GASTROOESOPHAGEAL REFLUX DISEASE [None]
  - RENAL FAILURE ACUTE [None]
  - RENAL FAILURE CHRONIC [None]
  - OSTEOARTHRITIS [None]
  - UTERINE DISORDER [None]
  - SPINAL OSTEOARTHRITIS [None]
  - AORTIC CALCIFICATION [None]
  - RECTAL POLYP [None]
  - TORTICOLLIS [None]
  - MICTURITION URGENCY [None]
  - ADVERSE DRUG REACTION [None]
  - INTERTRIGO [None]
  - ENTHESOPATHY [None]
  - LUMBAR SPINAL STENOSIS [None]
  - LACERATION [None]
  - SKIN INJURY [None]
  - ARTHROPATHY [None]
  - WRIST FRACTURE [None]
  - BACK PAIN [None]
  - INTERVERTEBRAL DISC DEGENERATION [None]
  - LYMPHADENITIS [None]
  - WOUND INFECTION [None]
